FAERS Safety Report 16843797 (Version 1)
Quarter: 2019Q4

REPORT INFORMATION
  Report Type: Spontaneous
  Country: US (occurrence: US)
  Receive Date: 20190923
  Receipt Date: 20190923
  Transmission Date: 20200122
  Serious: Yes (Other)
  Sender: FDA-Public Use
  Company Number: None

PATIENT
  Age: 61 Year
  Sex: Female

DRUGS (2)
  1. AMOXICILLIN 250 MG/5 ML SUSP [Suspect]
     Active Substance: AMOXICILLIN
     Indication: LYME DISEASE
     Route: 048
     Dates: start: 20190910
  2. NYSTATIN 100,000 UNIT/ML SUSP [Concomitant]
     Active Substance: NYSTATIN
     Dates: start: 20190920

REACTIONS (3)
  - Product quality issue [None]
  - Product taste abnormal [None]
  - Tendon pain [None]

NARRATIVE: CASE EVENT DATE: 20190923
